FAERS Safety Report 12258916 (Version 1)
Quarter: 2016Q2

REPORT INFORMATION
  Report Type: Spontaneous
  Country: US (occurrence: US)
  Receive Date: 20160412
  Receipt Date: 20160412
  Transmission Date: 20160815
  Serious: No
  Sender: FDA-Public Use
  Company Number: US-SA-2015SA062564

PATIENT
  Age: 33 Year
  Sex: Female

DRUGS (1)
  1. ALLEGRA [Suspect]
     Active Substance: FEXOFENADINE HYDROCHLORIDE
     Indication: MULTIPLE ALLERGIES
     Dosage: USED DRUG FOR 2 DAYS.?PRODUCT START DATE: 1ST WEEK OF APRIL?FORM: GELCAPS
     Route: 065
     Dates: start: 201504

REACTIONS (4)
  - Throat irritation [Unknown]
  - Lacrimation increased [Unknown]
  - Drug ineffective [Unknown]
  - Dry throat [Unknown]
